FAERS Safety Report 20847902 (Version 1)
Quarter: 2022Q2

REPORT INFORMATION
  Report Type: Report from Study
  Country: CA (occurrence: CA)
  Receive Date: 20220519
  Receipt Date: 20220519
  Transmission Date: 20220721
  Serious: Yes (Other)
  Sender: FDA-Public Use
  Company Number: CA-Clinigen Group PLC/ Clinigen Healthcare Ltd-CA-CLGN-22-00205

PATIENT
  Sex: Male

DRUGS (2)
  1. FOSCAVIR [Suspect]
     Active Substance: FOSCARNET SODIUM
     Indication: Cytomegalovirus infection
  2. VALGANCICLOVIR [Concomitant]
     Active Substance: VALGANCICLOVIR
     Indication: Cytomegalovirus infection

REACTIONS (1)
  - Capillary leak syndrome [Unknown]
